FAERS Safety Report 10690491 (Version 1)
Quarter: 2015Q1

REPORT INFORMATION
  Report Type: Spontaneous
  Country: US (occurrence: None)
  Receive Date: 20150102
  Receipt Date: 20150102
  Transmission Date: 20150720
  Serious: Yes (Other)
  Sender: FDA-Public Use
  Company Number: None

PATIENT
  Age: 43 Year
  Sex: Female
  Weight: 89.36 kg

DRUGS (1)
  1. BYSTOLIC [Suspect]
     Active Substance: NEBIVOLOL HYDROCHLORIDE
     Indication: HYPERTENSION
     Dosage: 5MG 1 PILL ONCE DAILY TAKEN BY MOUTH
     Route: 048
     Dates: start: 20140122, end: 20140815

REACTIONS (7)
  - Weight increased [None]
  - Discomfort [None]
  - Abdominal pain [None]
  - Myocardial infarction [None]
  - Dyspnoea [None]
  - Abdominal distension [None]
  - Marital problem [None]

NARRATIVE: CASE EVENT DATE: 20141015
